FAERS Safety Report 23925208 (Version 1)
Quarter: 2024Q2

REPORT INFORMATION
  Report Type: Spontaneous
  Country: NL (occurrence: NL)
  Receive Date: 20240531
  Receipt Date: 20240531
  Transmission Date: 20240716
  Serious: Yes (Other)
  Sender: FDA-Public Use
  Company Number: None

PATIENT
  Age: 66 Year
  Sex: Female
  Weight: 58 kg

DRUGS (1)
  1. AMOXICILLIN [Suspect]
     Active Substance: AMOXICILLIN
     Indication: Cystitis
     Dosage: 3 X PER DAY, AMOXICILLINE/BRAND NAME NOT SPECIFIED
     Route: 065
     Dates: start: 20240429, end: 20240430

REACTIONS (1)
  - Neuropathy peripheral [Not Recovered/Not Resolved]
